FAERS Safety Report 25790952 (Version 6)
Quarter: 2025Q4

REPORT INFORMATION
  Report Type: Spontaneous
  Country: US (occurrence: US)
  Receive Date: 20250911
  Receipt Date: 20251105
  Transmission Date: 20260119
  Serious: No
  Sender: PFIZER
  Company Number: US-PFIZER INC-202500177977

PATIENT
  Age: 11 Year
  Sex: Male

DRUGS (5)
  1. GENOTROPIN [Suspect]
     Active Substance: SOMATROPIN
     Dosage: 1.2 MG ALTERNATING WITH 1.4 MG
  2. GENOTROPIN [Suspect]
     Active Substance: SOMATROPIN
     Dosage: 1.2 MG ALTERNATING WITH 1.4 MG
  3. GENOTROPIN [Suspect]
     Active Substance: SOMATROPIN
     Dosage: 2 MG, DAILY
  4. GENOTROPIN [Suspect]
     Active Substance: SOMATROPIN
     Dosage: UNK
  5. GENOTROPIN [Suspect]
     Active Substance: SOMATROPIN
     Dosage: UNK

REACTIONS (3)
  - Drug dose omission by device [Unknown]
  - Device information output issue [Unknown]
  - Device breakage [Unknown]

NARRATIVE: CASE EVENT DATE: 20250101
